FAERS Safety Report 7807949-8 (Version None)
Quarter: 2011Q4

REPORT INFORMATION
  Report Type: 
  Country: None (occurrence: None)
  Receive Date: 20111011
  Receipt Date: 20111011
  Transmission Date: 20120403
  Serious: Yes (Life-Threatening)
  Sender: FDA-Public Use
  Company Number: None

PATIENT
  Age: 53 Year
  Sex: Male
  Weight: 74.842 kg

DRUGS (1)
  1. CYMBALTA [Suspect]
     Indication: DEPRESSION
     Dosage: 60 MG
     Route: 048
     Dates: start: 20100601, end: 20111006

REACTIONS (5)
  - UNEVALUABLE EVENT [None]
  - LOSS OF CONSCIOUSNESS [None]
  - PARAESTHESIA [None]
  - DRUG WITHDRAWAL SYNDROME [None]
  - ROAD TRAFFIC ACCIDENT [None]
